FAERS Safety Report 5974836-X (Version None)
Quarter: 2008Q4

REPORT INFORMATION
  Report Type: 
  Country: None (occurrence: None)
  Receive Date: 20081201
  Receipt Date: 20081126
  Transmission Date: 20090506
  Serious: Yes (Other)
  Sender: FDA-Public Use
  Company Number: US-PFIZER INC-2008100514

PATIENT
  Sex: Female
  Weight: 56.2 kg

DRUGS (6)
  1. LIPITOR [Suspect]
     Indication: BLOOD CHOLESTEROL INCREASED
     Dates: start: 20080101, end: 20081118
  2. METOPROLOL TARTRATE [Concomitant]
  3. XANAX [Concomitant]
  4. OXYCODONE HCL [Concomitant]
  5. KETOROLAC TROMETHAMINE [Concomitant]
  6. CARISOPRODOL [Concomitant]

REACTIONS (2)
  - BEDRIDDEN [None]
  - WEIGHT DECREASED [None]
